FAERS Safety Report 23391012 (Version 1)
Quarter: 2024Q1

REPORT INFORMATION
  Report Type: Spontaneous
  Country: ES (occurrence: ES)
  Receive Date: 20240111
  Receipt Date: 20240111
  Transmission Date: 20240410
  Serious: Yes (Other)
  Sender: FDA-Public Use
  Company Number: None

PATIENT
  Age: 85 Year
  Sex: Male

DRUGS (1)
  1. ERLEADA [Suspect]
     Active Substance: APALUTAMIDE
     Indication: Prostate cancer
     Dosage: 4 COMP AL DIA
     Route: 048
     Dates: start: 20211111, end: 20231001

REACTIONS (1)
  - Superficial inflammatory dermatosis [Recovering/Resolving]

NARRATIVE: CASE EVENT DATE: 20220601
